FAERS Safety Report 9312307 (Version 2)
Quarter: 2013Q3

REPORT INFORMATION
  Report Type: Report from Study
  Country: US (occurrence: US)
  Receive Date: 20130528
  Receipt Date: 20130723
  Transmission Date: 20140515
  Serious: Yes (Hospitalization)
  Sender: FDA-Public Use
  Company Number: US-ABBOTT-13P-163-1092387-00

PATIENT
  Age: 71 Year
  Sex: Female
  Weight: 72.64 kg

DRUGS (18)
  1. HUMIRA [Suspect]
     Indication: PSORIATIC ARTHROPATHY
     Dates: start: 2013
  2. HUMIRA [Suspect]
     Indication: ANKYLOSING SPONDYLITIS
  3. ARICEPT [Suspect]
     Indication: DEMENTIA ALZHEIMER^S TYPE
  4. HALCION [Suspect]
     Indication: DEMENTIA ALZHEIMER^S TYPE
  5. BIVANCE [Suspect]
     Indication: DEMENTIA ALZHEIMER^S TYPE
  6. NORVASC [Concomitant]
     Indication: MITRAL VALVE PROLAPSE
  7. MECLIZINE [Concomitant]
     Indication: BALANCE DISORDER
  8. INDERAL [Concomitant]
     Indication: HYPERTENSION
  9. POTASSIUM [Concomitant]
     Indication: MINERAL SUPPLEMENTATION
  10. VITAMIN D [Concomitant]
     Indication: VITAMIN SUPPLEMENTATION
  11. VITAMIN E [Concomitant]
     Indication: VITAMIN SUPPLEMENTATION
  12. FOLIC ACID [Concomitant]
     Indication: VITAMIN SUPPLEMENTATION
  13. ZINC [Concomitant]
     Indication: MINERAL SUPPLEMENTATION
  14. MAGNESIUM [Concomitant]
     Indication: MINERAL SUPPLEMENTATION
  15. ZOCOR [Concomitant]
     Indication: HYPERLIPIDAEMIA
  16. ROPINEROLE [Concomitant]
     Indication: RESTLESS LEGS SYNDROME
  17. XANAX [Concomitant]
     Indication: ANXIETY
  18. VITAMIN B12 [Concomitant]
     Indication: VITAMIN SUPPLEMENTATION

REACTIONS (4)
  - Dysarthria [Recovered/Resolved]
  - Hallucination [Recovered/Resolved]
  - Gas poisoning [Recovered/Resolved]
  - Coma [Recovered/Resolved]
